FAERS Safety Report 14932736 (Version 2)
Quarter: 2020Q4

REPORT INFORMATION
  Report Type: Report from Study
  Country: US (occurrence: US)
  Receive Date: 20180524
  Receipt Date: 20201230
  Transmission Date: 20210113
  Serious: No
  Sender: FDA-Public Use
  Company Number: US-ACADIA PHARMACEUTICALS INC.-ACA-2018-008721

PATIENT
  Sex: Female

DRUGS (1)
  1. NUPLAZID [Suspect]
     Active Substance: PIMAVANSERIN TARTRATE
     Indication: PARKINSON^S DISEASE
     Dosage: 17 MILLIGRAM, QD
     Route: 048
     Dates: start: 20180328, end: 20180423

REACTIONS (3)
  - Underdose [Unknown]
  - Drug ineffective [Unknown]
  - Adverse drug reaction [Unknown]
